FAERS Safety Report 12853635 (Version 1)
Quarter: 2016Q4

REPORT INFORMATION
  Report Type: Report from Study
  Country: CA (occurrence: CA)
  Receive Date: 20161017
  Receipt Date: 20161017
  Transmission Date: 20170207
  Serious: Yes (Hospitalization, Other)
  Sender: FDA-Public Use
  Company Number: CA-ROCHE-1341625

PATIENT
  Age: 58 Year
  Sex: Female
  Weight: 107 kg

DRUGS (31)
  1. BEVACIZUMAB [Suspect]
     Active Substance: BEVACIZUMAB
     Indication: ENDOMETRIAL ADENOCARCINOMA
     Dosage: DATE OF LAST DOSE PRIOR TO SAE: 23/DEC/2013?COURSE 1?22/MAR/2010 (COURSE 2), 19/APR/2010 (COURSE 3),
     Route: 042
     Dates: start: 20100212
  2. BEVACIZUMAB [Suspect]
     Active Substance: BEVACIZUMAB
     Dosage: COURSE 25
     Route: 042
     Dates: start: 20120109
  3. ACETAMINOPHEN. [Concomitant]
     Active Substance: ACETAMINOPHEN
  4. FLURAZEPAM [Concomitant]
     Active Substance: FLURAZEPAM\FLURAZEPAM HYDROCHLORIDE
  5. HYDROCHLOROTHIAZIDE. [Suspect]
     Active Substance: HYDROCHLOROTHIAZIDE
     Indication: PRODUCT USED FOR UNKNOWN INDICATION
     Route: 065
     Dates: end: 20131104
  6. EFFEXOR [Concomitant]
     Active Substance: VENLAFAXINE HYDROCHLORIDE
  7. JANUVIA [Concomitant]
     Active Substance: SITAGLIPTIN PHOSPHATE
  8. LIPITOR [Concomitant]
     Active Substance: ATORVASTATIN CALCIUM
  9. BEVACIZUMAB [Suspect]
     Active Substance: BEVACIZUMAB
     Dosage: COURSE 30
     Route: 042
     Dates: start: 20120528
  10. BEVACIZUMAB [Suspect]
     Active Substance: BEVACIZUMAB
     Dosage: COURSE 35?03/DEC/2012 (COURSE 36), 21/JAN/2013 (COURSE 37), 19/FEB/2013 (COURSE 38), 18/MAR/2013 (CO
     Route: 042
     Dates: start: 20121106
  11. TEMSIROLIMUS [Suspect]
     Active Substance: TEMSIROLIMUS
     Dosage: COURSE 4?14/JUN/2010 (COURSE 5), 12/JUL/2010 (COURSE 6), 09/AUG/2010 (COURSE 7), 07/SEP/2010 (COURSE
     Route: 042
     Dates: start: 20100517
  12. TEMSIROLIMUS [Suspect]
     Active Substance: TEMSIROLIMUS
     Dosage: COURSE 54
     Route: 042
     Dates: start: 20140611
  13. LANTUS [Concomitant]
     Active Substance: INSULIN GLARGINE
  14. BEVACIZUMAB [Suspect]
     Active Substance: BEVACIZUMAB
     Dosage: COURSE 41?03/DEC/2012 (COURSE 36), 21/JAN/2013 (COURSE 37), 19/FEB/2013 (COURSE 38), 18/MAR/2013 (CO
     Route: 042
     Dates: start: 20130513
  15. LIPIDIL [Concomitant]
     Active Substance: FENOFIBRATE
  16. VITAMIN C [Concomitant]
     Active Substance: ASCORBIC ACID
  17. BEVACIZUMAB [Suspect]
     Active Substance: BEVACIZUMAB
     Dosage: COURSE 12?13/JUN/2011 (COURSE 18)
     Route: 042
     Dates: start: 20101229
  18. BEVACIZUMAB [Suspect]
     Active Substance: BEVACIZUMAB
     Dosage: COURSE 23
     Route: 042
     Dates: start: 20111031
  19. GLICLAZIDE [Suspect]
     Active Substance: GLICLAZIDE
     Indication: PRODUCT USED FOR UNKNOWN INDICATION
     Route: 065
  20. SYNTHROID [Concomitant]
     Active Substance: LEVOTHYROXINE SODIUM
  21. BEVACIZUMAB [Suspect]
     Active Substance: BEVACIZUMAB
     Dosage: COURSE 27
     Route: 042
     Dates: start: 20120305
  22. BEVACIZUMAB [Suspect]
     Active Substance: BEVACIZUMAB
     Dosage: COURSE 29
     Route: 042
     Dates: start: 20120430
  23. BEVACIZUMAB [Suspect]
     Active Substance: BEVACIZUMAB
     Dosage: COURSE 31?13/AUG/2012 (COURSE 32), 10/SEP/2012 (COURSE 33), 09/OCT/2012 (COURSE 34)
     Route: 042
     Dates: start: 20120709
  24. TEMSIROLIMUS [Suspect]
     Active Substance: TEMSIROLIMUS
     Indication: ENDOMETRIAL ADENOCARCINOMA
     Dosage: DATE OF LAST DOSE PRIOR TO SAE: 08/JAN/2014
     Route: 042
     Dates: start: 20100212
  25. METFORMIN [Concomitant]
     Active Substance: METFORMIN HYDROCHLORIDE
     Route: 065
  26. METOPROLOL. [Concomitant]
     Active Substance: METOPROLOL
  27. BEVACIZUMAB [Suspect]
     Active Substance: BEVACIZUMAB
     Dosage: COURSE 28
     Route: 042
     Dates: start: 20120402
  28. BEVACIZUMAB [Suspect]
     Active Substance: BEVACIZUMAB
     Dosage: COURSE 48
     Route: 042
     Dates: start: 20131209
  29. BEVACIZUMAB [Suspect]
     Active Substance: BEVACIZUMAB
     Dosage: COURSE 24?06/FEB/2012 (COURSE 26),
     Route: 042
     Dates: start: 20111128
  30. BEVACIZUMAB [Suspect]
     Active Substance: BEVACIZUMAB
     Dosage: COURSE 42?12/AUG/2013 (COURSE 44), 09/SEP/2013 (COURSE 45)
     Route: 042
     Dates: start: 20130610
  31. TEMSIROLIMUS [Suspect]
     Active Substance: TEMSIROLIMUS
     Dosage: COURSE 19?03/OCT/2011 (COURSE 22), 28/NOV/2011 (COURSE 24), 06/FEB/2012 (COURSE 26), 09/JUL/2012 (CO
     Route: 042
     Dates: start: 20110711

REACTIONS (9)
  - Nephrotic syndrome [Unknown]
  - Hyperglycaemia [Unknown]
  - Diarrhoea [Unknown]
  - Vomiting [Unknown]
  - Vomiting [Recovering/Resolving]
  - Hypertriglyceridaemia [Unknown]
  - Proteinuria [Unknown]
  - Hypertension [Unknown]
  - Diarrhoea [Recovering/Resolving]

NARRATIVE: CASE EVENT DATE: 20111217
